FAERS Safety Report 5234389-0 (Version None)
Quarter: 2007Q1

REPORT INFORMATION
  Report Type: 
  Country: None (occurrence: None)
  Receive Date: 20070209
  Receipt Date: 20070130
  Transmission Date: 20070707
  Serious: Yes (Other)
  Sender: FDA-Public Use
  Company Number: JP-ROCHE-480438

PATIENT
  Age: 31 Year
  Sex: Female

DRUGS (2)
  1. HORIZON [Suspect]
     Indication: SEDATION
     Route: 042
     Dates: start: 20070121, end: 20070121
  2. PHYSIOSOL [Concomitant]
     Dates: start: 20070121, end: 20070121

REACTIONS (2)
  - FEELING ABNORMAL [None]
  - RESPIRATORY DEPRESSION [None]
